FAERS Safety Report 4498001-0 (Version None)
Quarter: 2004Q4

REPORT INFORMATION
  Report Type: 
  Country: None (occurrence: None)
  Receive Date: 20041110
  Receipt Date: 20041101
  Transmission Date: 20050328
  Serious: Yes (Other)
  Sender: FDA-Public Use
  Company Number: PHBS2004JP14820

PATIENT
  Age: 15 Year
  Sex: Female

DRUGS (4)
  1. TEGRETOL [Suspect]
     Indication: DEPRESSION
     Route: 048
  2. ZADITEN [Suspect]
     Indication: RHINITIS ALLERGIC
     Route: 048
     Dates: start: 20010401, end: 20010101
  3. ANTI-HISTAMINE TAB [Suspect]
     Indication: RHINITIS ALLERGIC
     Route: 048
     Dates: start: 20010401, end: 20010101
  4. DEPAKENE [Concomitant]
     Route: 048

REACTIONS (2)
  - CONVULSION [None]
  - DRUG INTERACTION [None]
